FAERS Safety Report 6064621-5 (Version None)
Quarter: 2009Q1

REPORT INFORMATION
  Report Type: 
  Country: None (occurrence: None)
  Receive Date: 20090204
  Receipt Date: 20071218
  Transmission Date: 20090719
  Serious: No
  Sender: FDA-Public Use
  Company Number: A0699519A

PATIENT
  Sex: Male

DRUGS (2)
  1. ARIXTRA [Suspect]
     Indication: HIP SURGERY
     Route: 058
     Dates: start: 20070101
  2. NO CONCURRENT MEDICATION [Concomitant]

REACTIONS (1)
  - HIP SWELLING [None]
